FAERS Safety Report 25107845 (Version 2)
Quarter: 2025Q3

REPORT INFORMATION
  Report Type: Spontaneous
  Country: US (occurrence: US)
  Receive Date: 20250322
  Receipt Date: 20250917
  Transmission Date: 20251021
  Serious: No
  Sender: SANOFI AVENTIS
  Company Number: US-SA-2025SA081604

PATIENT
  Age: 48 Year
  Sex: Female

DRUGS (1)
  1. DUPIXENT [Suspect]
     Active Substance: DUPILUMAB
     Indication: Dermatitis atopic
     Dosage: 300 MG, QOW
     Route: 058

REACTIONS (7)
  - Pruritus [Unknown]
  - Erythema [Unknown]
  - Sleep disorder due to a general medical condition [Unknown]
  - Skin atrophy [Unknown]
  - Sticky skin [Unknown]
  - Pain in extremity [Unknown]
  - Gait disturbance [Unknown]
